FAERS Safety Report 6376712-X (Version None)
Quarter: 2009Q3

REPORT INFORMATION
  Report Type: 
  Country: None (occurrence: None)
  Receive Date: 20090925
  Receipt Date: 20090915
  Transmission Date: 20100115
  Serious: Yes (Other)
  Sender: FDA-Public Use
  Company Number: BR-BAYER-200921790LA

PATIENT
  Age: 43 Year
  Sex: Female
  Weight: 69 kg

DRUGS (3)
  1. YAZ [Suspect]
     Indication: ENDOMETRIOSIS
     Route: 048
  2. YASMIN [Suspect]
     Indication: ENDOMETRIOSIS
     Route: 048
  3. MIRENA [Suspect]
     Indication: ENDOMETRIOSIS
     Dosage: FREQUENCY: CONTINUOUS
     Route: 015
     Dates: start: 20060624

REACTIONS (4)
  - HEADACHE [None]
  - HYPOACUSIS [None]
  - OTOSCLEROSIS [None]
  - VAGINAL HAEMORRHAGE [None]
